FAERS Safety Report 9549144 (Version 2)
Quarter: 2013Q3

REPORT INFORMATION
  Report Type: Spontaneous
  Country: US (occurrence: US)
  Receive Date: 20130924
  Receipt Date: 20130924
  Transmission Date: 20140515
  Serious: No
  Sender: FDA-Public Use
  Company Number: US-009507513-1207USA002747

PATIENT
  Sex: Female
  Weight: 77.98 kg

DRUGS (7)
  1. IMPLANON [Suspect]
     Indication: CONTRACEPTION
     Dosage: UNK
     Route: 059
     Dates: start: 20110629, end: 20120715
  2. SAPHRIS [Concomitant]
  3. CLONIDINE [Concomitant]
  4. PROZAC [Concomitant]
  5. LAMOTRIGINE [Concomitant]
  6. ROPINIROLE [Concomitant]
  7. STRATTERA [Concomitant]

REACTIONS (9)
  - Pregnancy with implant contraceptive [Unknown]
  - Weight increased [Unknown]
  - Metrorrhagia [Unknown]
  - Nausea [Unknown]
  - Abdominal distension [Unknown]
  - Constipation [Unknown]
  - Mastoptosis [Unknown]
  - Breast discomfort [Unknown]
  - Dizziness [Unknown]
